FAERS Safety Report 22956391 (Version 3)
Quarter: 2024Q3

REPORT INFORMATION
  Report Type: Spontaneous
  Country: KR (occurrence: KR)
  Receive Date: 20230919
  Receipt Date: 20240828
  Transmission Date: 20241017
  Serious: Yes (Death, Hospitalization, Other)
  Sender: CELLTRION
  Company Number: KR-CELLTRION INC.-2023KR017004

PATIENT

DRUGS (29)
  1. HERZUMA [Suspect]
     Active Substance: TRASTUZUMAB-PKRB
     Indication: Breast cancer metastatic
     Dosage: 527.4 MG, Q 3WEEK
     Route: 042
     Dates: start: 20200918, end: 20230804
  2. RIBOCICLIB [Suspect]
     Active Substance: RIBOCICLIB
     Indication: Breast cancer metastatic
     Dosage: UNK
     Dates: start: 20200918
  3. LETROZOLE [Suspect]
     Active Substance: LETROZOLE
     Indication: Breast cancer metastatic
     Dosage: UNK
     Dates: start: 20200918
  4. ACETPHEN PREMIX [Concomitant]
     Indication: Pyrexia
     Dosage: Q24HR/IV
     Route: 042
     Dates: start: 20230828, end: 20230828
  5. AMOBUROFEN [Concomitant]
     Indication: Pyrexia
     Dosage: 400MG 24HR
     Dates: start: 20230821
  6. SARPOGRELATE HYDROCHLORIDE [Concomitant]
     Active Substance: SARPOGRELATE HYDROCHLORIDE
     Indication: Hypertension
     Dosage: 100 MG, QD PO
     Route: 048
     Dates: start: 20180615
  7. BANAN [Concomitant]
     Active Substance: CEFPODOXIME PROXETIL
     Indication: Pneumonia
     Dosage: 2T/PO BID
     Route: 048
     Dates: start: 20230907
  8. PROPACETAMOL HYDROCHLORIDE [Concomitant]
     Active Substance: PROPACETAMOL HYDROCHLORIDE
     Indication: Pyrexia
     Dosage: 10000MG QD/IBV
     Dates: start: 20230829, end: 20230829
  9. DEXID [Concomitant]
     Indication: Peripheral sensory neuropathy
     Dosage: 480MG QD PO
     Route: 048
     Dates: start: 20210303
  10. CALCIUM CARBONATE\CHOLECALCIFEROL [Concomitant]
     Active Substance: CALCIUM CARBONATE\CHOLECALCIFEROL
     Indication: Prophylaxis
     Dosage: 1T QD PO
     Route: 048
     Dates: start: 20190626
  11. AMITRIPTYLINE HYDROCHLORIDE [Concomitant]
     Active Substance: AMITRIPTYLINE HYDROCHLORIDE
     Indication: Peripheral sensory neuropathy
     Dosage: 10MG PRN PO
     Route: 048
     Dates: start: 20210910
  12. FOTAGEL [Concomitant]
     Indication: Diarrhoea
     Dosage: 20ML TID
     Dates: start: 20230903
  13. GINEXIN-F [Concomitant]
     Indication: Diabetes mellitus
     Dosage: 80MG BID PO
     Route: 048
     Dates: start: 20151006
  14. METFORMIN HYDROCHLORIDE [Concomitant]
     Active Substance: METFORMIN HYDROCHLORIDE
     Indication: Diabetes mellitus
     Dosage: 1000MG 1T/PO QD
     Route: 048
     Dates: start: 20230830
  15. HUMULIN R [Concomitant]
     Active Substance: INSULIN HUMAN
     Indication: Diabetes mellitus
     Dosage: UNK , PRN
     Route: 058
     Dates: start: 20230828, end: 20230902
  16. K CAB [Concomitant]
     Indication: Dyspepsia
     Dosage: 50 MF QD/PO
     Route: 048
     Dates: start: 20230901
  17. K CAB [Concomitant]
     Indication: Prophylaxis
     Dosage: 1T/PO QD
     Route: 048
     Dates: start: 20230907
  18. K CAB [Concomitant]
     Indication: Gastrointestinal disorder
  19. LYRICA [Concomitant]
     Active Substance: PREGABALIN
     Indication: Peripheral sensory neuropathy
     Dosage: 150MG BID PO
     Route: 048
     Dates: start: 20190626
  20. PRAVASTATIN SODIUM [Concomitant]
     Active Substance: PRAVASTATIN SODIUM
     Indication: Diabetes mellitus
     Dosage: 20MG QD PO
     Route: 048
     Dates: start: 20170913
  21. NORPIN [NOREPINEPHRINE] [Concomitant]
     Indication: Hypotension
     Dosage: 20 MG, PRN
     Route: 042
     Dates: start: 20230828, end: 20230828
  22. PANTOPRAZOLE SODIUM [Concomitant]
     Active Substance: PANTOPRAZOLE SODIUM
     Indication: Dyspepsia
     Dosage: 40MG QD PO
     Route: 048
     Dates: start: 20201006
  23. PENIRAMIN [Concomitant]
     Indication: Pruritus
     Dosage: 2MG PRN PO
     Route: 048
     Dates: start: 20201016
  24. AMLODIPINE BESYLATE\HYDROCHLOROTHIAZIDE\OLMESARTAN MEDOXOMIL [Concomitant]
     Active Substance: AMLODIPINE BESYLATE\HYDROCHLOROTHIAZIDE\OLMESARTAN MEDOXOMIL
     Indication: Hypertension
     Dosage: 5/40/12.5MG
     Dates: start: 20180615
  25. LEVOTHYROXINE SODIUM [Concomitant]
     Active Substance: LEVOTHYROXINE SODIUM
     Indication: Hypothyroidism
     Dosage: 50MCG 1T/PO
     Route: 048
     Dates: start: 20230314
  26. TAPOCIN [Concomitant]
     Indication: Sepsis
     Dosage: Q24HR/IV
     Route: 042
     Dates: start: 20230828, end: 20230906
  27. TAPOCIN [Concomitant]
     Indication: Pneumonia
  28. TRESIBA [Concomitant]
     Active Substance: INSULIN DEGLUDEC
     Indication: Diabetes mellitus
     Dosage: 300 UNIT QD SC
     Route: 058
     Dates: start: 20190913
  29. XIGDUO XR [Concomitant]
     Active Substance: DAPAGLIFLOZIN PROPANEDIOL\METFORMIN HYDROCHLORIDE
     Indication: Diabetes mellitus
     Dosage: 10/1000 1T QD PO
     Route: 048
     Dates: start: 20210830, end: 20230829

REACTIONS (6)
  - Sudden death [Fatal]
  - Cardiac arrest [Fatal]
  - Pneumonia [Recovering/Resolving]
  - Septic shock [Recovering/Resolving]
  - Urinary tract infection [Recovering/Resolving]
  - COVID-19 [Unknown]

NARRATIVE: CASE EVENT DATE: 20230821
